FAERS Safety Report 18563496 (Version 1)
Quarter: 2020Q4

REPORT INFORMATION
  Report Type: Spontaneous
  Country: FR (occurrence: FR)
  Receive Date: 20201201
  Receipt Date: 20201201
  Transmission Date: 20210114
  Serious: Yes (Disabling, Other)
  Sender: FDA-Public Use
  Company Number: FR-SA-2020SA334954

PATIENT

DRUGS (8)
  1. MYAMBUTOL [Suspect]
     Active Substance: ETHAMBUTOL HYDROCHLORIDE
     Indication: TUBERCULOSIS
     Dosage: UNK
     Dates: start: 198412, end: 198512
  2. ISONIAZID. [Suspect]
     Active Substance: ISONIAZID
     Dosage: UNK
     Dates: start: 1987, end: 1989
  3. RIFADINE [Suspect]
     Active Substance: RIFAMPIN
     Indication: TUBERCULOSIS
     Dosage: UNK
     Dates: start: 198412, end: 198512
  4. RIFADINE [Suspect]
     Active Substance: RIFAMPIN
     Dosage: UNK
     Dates: start: 1987, end: 1989
  5. MYAMBUTOL [Suspect]
     Active Substance: ETHAMBUTOL HYDROCHLORIDE
     Dosage: UNK
     Dates: start: 1987, end: 1989
  6. PIRILENE [Suspect]
     Active Substance: PYRAZINAMIDE
     Dosage: UNK
     Dates: start: 1987, end: 1989
  7. ISONIAZID. [Suspect]
     Active Substance: ISONIAZID
     Indication: TUBERCULOSIS
     Dosage: UNK
     Dates: start: 198412, end: 198512
  8. PIRILENE [Suspect]
     Active Substance: PYRAZINAMIDE
     Indication: TUBERCULOSIS
     Dosage: UNK
     Dates: start: 198412, end: 198512

REACTIONS (6)
  - Atrophy [Unknown]
  - Myelopathy [Unknown]
  - Myelitis [Unknown]
  - Disability [Unknown]
  - Head injury [Unknown]
  - Eye disorder [Unknown]

NARRATIVE: CASE EVENT DATE: 20160126
